FAERS Safety Report 14389581 (Version 2)
Quarter: 2018Q3

REPORT INFORMATION
  Report Type: Spontaneous
  Country: US (occurrence: US)
  Receive Date: 20180115
  Receipt Date: 20180807
  Transmission Date: 20181010
  Serious: Yes (Other)
  Sender: FDA-Public Use
  Company Number: US-SA-2017SA243773

PATIENT
  Age: 65 Year
  Sex: Female
  Weight: 107 kg

DRUGS (18)
  1. NORCO [Concomitant]
     Active Substance: ACETAMINOPHEN\HYDROCODONE BITARTRATE
     Indication: PAIN
     Dosage: UNK UNK,PRN
     Route: 048
     Dates: start: 20150106
  2. CLINDAMYCIN. [Concomitant]
     Active Substance: CLINDAMYCIN
     Dosage: 300 MG,UNK
     Route: 065
  3. KLOR?CON [Concomitant]
     Active Substance: POTASSIUM CHLORIDE
     Dosage: 8 MG,QD
     Route: 048
     Dates: start: 20141106
  4. MAGIC MOUTHWASH [Concomitant]
     Active Substance: DIPHENHYDRAMINE HYDROCHLORIDE\LIDOCAINE HYDROCHLORIDE\NYSTATIN
     Indication: BREAST CANCER
     Dosage: MIX EQUAL PARTS BCNADRYL, MAALOX,AND XY LOCAINC VISCOUS.L?2TSPS AC. SWISH AND SPIT/SWISH AND SWALLOW
     Dates: start: 20150129
  5. PROCHLORPERAZINE. [Concomitant]
     Active Substance: PROCHLORPERAZINE
     Indication: BREAST CANCER
     Dosage: 10 MG,UNK
     Route: 048
     Dates: start: 20150127
  6. DOXORUBICIN [Concomitant]
     Active Substance: DOXORUBICIN
  7. MAXZIDE [Concomitant]
     Active Substance: HYDROCHLOROTHIAZIDE\TRIAMTERENE
     Dosage: UNK UNK,QD
     Route: 048
     Dates: start: 20140826
  8. METOPROLOL TARTRATE. [Concomitant]
     Active Substance: METOPROLOL TARTRATE
     Dosage: 50 MG,BID
     Route: 048
     Dates: start: 20141016
  9. NORCO [Concomitant]
     Active Substance: ACETAMINOPHEN\HYDROCODONE BITARTRATE
     Indication: BREAST CANCER
  10. LORAZEPAM. [Concomitant]
     Active Substance: LORAZEPAM
     Indication: BREAST CANCER
     Dosage: 1 MG,HS
     Route: 048
     Dates: start: 20150127
  11. OMEPRAZOLE. [Concomitant]
     Active Substance: OMEPRAZOLE
     Dosage: 40 MG,QD
     Route: 048
     Dates: start: 20141106
  12. VENLAFAXINE HYDROCHLORIDE. [Concomitant]
     Active Substance: VENLAFAXINE HYDROCHLORIDE
     Dosage: 225 MG,QD
     Route: 048
     Dates: start: 20141116
  13. TAXOTERE [Suspect]
     Active Substance: DOCETAXEL
     Indication: BREAST CANCER FEMALE
     Dosage: UNK UNK,QCY
     Route: 051
     Dates: start: 20141230, end: 20141230
  14. CYCLOPHOSPHAMIDE. [Concomitant]
     Active Substance: CYCLOPHOSPHAMIDE
  15. LEVOTHYROXINE. [Concomitant]
     Active Substance: LEVOTHYROXINE
     Dosage: 88 UG,QD
     Route: 048
     Dates: start: 20141106
  16. ZYRTEC [Concomitant]
     Active Substance: CETIRIZINE HYDROCHLORIDE
     Dosage: UNK UNK,QD
     Route: 048
     Dates: start: 20141016
  17. PROCHLORPERAZINE. [Concomitant]
     Active Substance: PROCHLORPERAZINE
     Indication: NAUSEA
  18. METHYLPREDNISOLONE. [Concomitant]
     Active Substance: METHYLPREDNISOLONE
     Indication: BREAST CANCER
     Dosage: UNK UNK,PRN
     Route: 065
     Dates: start: 20150130

REACTIONS (3)
  - Alopecia [Not Recovered/Not Resolved]
  - Anxiety [Unknown]
  - Emotional distress [Unknown]

NARRATIVE: CASE EVENT DATE: 201506
